FAERS Safety Report 18688210 (Version 2)
Quarter: 2021Q1

REPORT INFORMATION
  Report Type: Spontaneous
  Country: TW (occurrence: TW)
  Receive Date: 20201231
  Receipt Date: 20210108
  Transmission Date: 20210419
  Serious: Yes (Death, Other)
  Sender: FDA-Public Use
  Company Number: NVSC2020TW340931

PATIENT
  Sex: Male

DRUGS (4)
  1. DOCETAXEL. [Suspect]
     Active Substance: DOCETAXEL
     Indication: PRODUCT USED FOR UNKNOWN INDICATION
     Dosage: UNK
     Route: 065
  2. PACLITAXEL. [Suspect]
     Active Substance: PACLITAXEL
     Indication: PRODUCT USED FOR UNKNOWN INDICATION
     Dosage: UNK
     Route: 065
     Dates: start: 20200319
  3. AFATINIB [Concomitant]
     Active Substance: AFATINIB
     Indication: BONE PAIN
     Dosage: 40 MG, Q4W
     Route: 065
     Dates: start: 20190806
  4. AFATINIB [Concomitant]
     Active Substance: AFATINIB
     Dosage: 40 MG, UNKNOWN
     Route: 065
     Dates: start: 20191020

REACTIONS (2)
  - Interstitial lung disease [Unknown]
  - Death [Fatal]
